FAERS Safety Report 18349611 (Version 2)
Quarter: 2020Q4

REPORT INFORMATION
  Report Type: Spontaneous
  Country: CR (occurrence: CR)
  Receive Date: 20201006
  Receipt Date: 20201012
  Transmission Date: 20210114
  Serious: Yes (Hospitalization, Other)
  Sender: FDA-Public Use
  Company Number: CR-PFIZER INC-2020380930

PATIENT
  Age: 25 Year
  Sex: Female

DRUGS (11)
  1. ENALAPRIL [Concomitant]
     Active Substance: ENALAPRIL
     Dosage: 5 MG, DAILY
  2. METHOTREXATE. [Suspect]
     Active Substance: METHOTREXATE
     Dosage: UNK
  3. HIDROXICLOROQUINA [HYDROXYCHLOROQUINE] [Suspect]
     Active Substance: HYDROXYCHLOROQUINE
     Dosage: UNK
  4. LEFLUNOMIDA [Suspect]
     Active Substance: LEFLUNOMIDE
  5. CARVEDILOL. [Concomitant]
     Active Substance: CARVEDILOL
     Dosage: 3.25 UNK
  6. PREDNISOLONA [PREDNISOLONE] [Suspect]
     Active Substance: PREDNISOLONE
  7. FUROSEMIDA [FUROSEMIDE] [Concomitant]
     Active Substance: FUROSEMIDE
     Dosage: 40 MG, DAILY
  8. WARFARINA [WARFARIN] [Concomitant]
     Active Substance: WARFARIN
     Indication: ANTICOAGULANT THERAPY
     Dosage: UNK
  9. CARVEDILOL. [Concomitant]
     Active Substance: CARVEDILOL
     Dosage: 6.25 MG, 2X/DAY
  10. ENALAPRIL [Concomitant]
     Active Substance: ENALAPRIL
     Dosage: 5 MG, 2X/DAY
  11. ESPIRONOLACTONA [Concomitant]
     Active Substance: SPIRONOLACTONE
     Dosage: 25 MG, DAILY

REACTIONS (11)
  - Pneumonia [Unknown]
  - Superinfection bacterial [Unknown]
  - Cardiac failure [Unknown]
  - Cardiac disorder [Unknown]
  - Immunosuppression [Unknown]
  - Heart rate increased [Unknown]
  - Troponin I increased [Unknown]
  - COVID-19 [Unknown]
  - Heart injury [Unknown]
  - Hypotension [Unknown]
  - Brain natriuretic peptide abnormal [Unknown]
